FAERS Safety Report 26211598 (Version 1)
Quarter: 2025Q4

REPORT INFORMATION
  Report Type: Report from Study
  Country: EU (occurrence: EU)
  Receive Date: 20251230
  Receipt Date: 20251230
  Transmission Date: 20260118
  Serious: Yes (Death, Hospitalization, Other)
  Sender: AUROBINDO
  Company Number: EU-MYLANLABS-2025M1105845

PATIENT
  Age: 94 Year
  Sex: Male

DRUGS (1)
  1. APIXABAN [Suspect]
     Active Substance: APIXABAN
     Indication: Transient ischaemic attack
     Dosage: UNK
     Route: 065

REACTIONS (2)
  - Cerebral ischaemia [Fatal]
  - Subdural haematoma [Fatal]
